FAERS Safety Report 15335844 (Version 3)
Quarter: 2018Q3

REPORT INFORMATION
  Report Type: Report from Study
  Country: BR (occurrence: BR)
  Receive Date: 20180830
  Receipt Date: 20180904
  Transmission Date: 20181010
  Serious: Yes (Hospitalization, Other)
  Sender: FDA-Public Use
  Company Number: BR-ALEXION PHARMACEUTICALS INC-A201810429

PATIENT
  Age: 55 Year
  Sex: Female
  Weight: 104 kg

DRUGS (3)
  1. SOLIRIS [Suspect]
     Active Substance: ECULIZUMAB
     Indication: PAROXYSMAL NOCTURNAL HAEMOGLOBINURIA
     Dosage: 600 MG, EVERY 7 DAYS
     Route: 042
     Dates: start: 20151007, end: 20151028
  2. FOLIC ACID. [Concomitant]
     Active Substance: FOLIC ACID
     Indication: PRODUCT USED FOR UNKNOWN INDICATION
     Dosage: UNK
     Route: 065
  3. SOLIRIS [Suspect]
     Active Substance: ECULIZUMAB
     Dosage: 900 MG, EVERY 14 DAYS
     Route: 042
     Dates: start: 20151104

REACTIONS (16)
  - Dehydration [Unknown]
  - Pleural effusion [Recovered/Resolved]
  - Abdominal pain [Recovered/Resolved]
  - Haemoglobin decreased [Unknown]
  - Depressed mood [Unknown]
  - Headache [Unknown]
  - Renal disorder [Unknown]
  - Vomiting [Recovered/Resolved]
  - Blood creatinine increased [Recovering/Resolving]
  - Blood urea increased [Recovering/Resolving]
  - Fluid retention [Unknown]
  - Postmenopausal haemorrhage [Recovered/Resolved]
  - Haemolysis [Not Recovered/Not Resolved]
  - Haematocrit decreased [Recovering/Resolving]
  - Hypertension [Unknown]
  - Drug resistance [Unknown]

NARRATIVE: CASE EVENT DATE: 20180805
